FAERS Safety Report 9015683 (Version 2)
Quarter: 2013Q3

REPORT INFORMATION
  Report Type: Spontaneous
  Country: JP (occurrence: JP)
  Receive Date: 20130116
  Receipt Date: 20130820
  Transmission Date: 20140515
  Serious: Yes (Hospitalization)
  Sender: FDA-Public Use
  Company Number: JP-ROCHE-1179839

PATIENT
  Age: 66 Year
  Sex: Female
  Weight: 42 kg

DRUGS (17)
  1. ACTEMRA [Suspect]
     Indication: RHEUMATOID ARTHRITIS
     Route: 041
     Dates: start: 20121015, end: 20121210
  2. ACTEMRA [Suspect]
     Indication: RHEUMATOID ARTHRITIS
     Route: 041
     Dates: start: 20130204
  3. PREDNISOLONE [Suspect]
     Indication: RHEUMATOID ARTHRITIS
     Route: 048
     Dates: start: 20090902
  4. PREDNISOLONE [Suspect]
     Indication: RHEUMATOID ARTHRITIS
     Route: 048
     Dates: start: 20091130
  5. PREDNISOLONE [Suspect]
     Indication: RHEUMATOID ARTHRITIS
     Route: 048
     Dates: start: 20100208
  6. PREDNISOLONE [Suspect]
     Indication: RHEUMATOID ARTHRITIS
     Route: 048
     Dates: start: 20100419
  7. CELECOX [Suspect]
     Indication: RHEUMATOID ARTHRITIS
     Route: 065
     Dates: start: 20110829, end: 20121225
  8. RHEUMATREX [Suspect]
     Indication: PRODUCT USED FOR UNKNOWN INDICATION
     Route: 048
     Dates: start: 20100517, end: 20130401
  9. PROMAC (JAPAN) [Concomitant]
     Indication: PROPHYLAXIS
     Route: 048
     Dates: start: 20100921
  10. KIPRES [Concomitant]
     Indication: ASTHMA
     Route: 048
     Dates: start: 20100323
  11. ALOSENN [Concomitant]
     Indication: CONSTIPATION
     Route: 048
     Dates: start: 20100809
  12. ONEALFA [Concomitant]
     Indication: OSTEOPOROSIS
     Route: 048
     Dates: start: 20110117
  13. HIBON [Concomitant]
     Indication: STOMATITIS
     Route: 048
     Dates: start: 20110314
  14. EPADEL [Concomitant]
     Indication: HYPERTRIGLYCERIDAEMIA
     Route: 048
     Dates: start: 20120116
  15. BARACLUDE [Concomitant]
     Indication: HEPATITIS B
     Dosage: DOSAGE IS UNCERTAIN.
     Route: 048
     Dates: start: 200909
  16. TERIPARATIDE [Concomitant]
     Indication: OSTEOPOROSIS
     Dosage: DRUG REPORTED AS : TERIBONE. DOSAGE IS UNCERTAIN.
     Route: 058
     Dates: start: 201209
  17. TAKEPRON [Concomitant]
     Indication: PROPHYLAXIS
     Route: 048
     Dates: start: 200909

REACTIONS (4)
  - Henoch-Schonlein purpura [Recovered/Resolved]
  - Small intestine ulcer [Recovered/Resolved]
  - Oropharyngeal pain [Recovering/Resolving]
  - Infection [Unknown]
